FAERS Safety Report 5861605-4 (Version None)
Quarter: 2008Q3

REPORT INFORMATION
  Report Type: 
  Country: None (occurrence: None)
  Receive Date: 20080827
  Receipt Date: 20080618
  Transmission Date: 20090109
  Serious: No
  Sender: FDA-Public Use
  Company Number: US-ABBOTT-08P-163-0458168-00

PATIENT
  Sex: Female
  Weight: 92.616 kg

DRUGS (1)
  1. NIASPAN [Suspect]
     Indication: DRUG USE FOR UNKNOWN INDICATION
     Route: 048
     Dates: start: 20080613, end: 20080617

REACTIONS (2)
  - HYPERSENSITIVITY [None]
  - PRURITUS [None]
